FAERS Safety Report 22109008 (Version 1)
Quarter: 2023Q1

REPORT INFORMATION
  Report Type: Spontaneous
  Country: US (occurrence: None)
  Receive Date: 20230316
  Receipt Date: 20230316
  Transmission Date: 20230418
  Serious: No
  Sender: FDA-Public Use
  Company Number: None

PATIENT
  Age: 34 Year
  Sex: Female
  Weight: 69.75 kg

DRUGS (7)
  1. METHYLPHENIDATE HYDROCHLORIDE [Suspect]
     Active Substance: METHYLPHENIDATE HYDROCHLORIDE
     Indication: Craniocerebral injury
     Dosage: FREQUENCY : 3 TIMES A DAY;?
     Route: 048
     Dates: start: 20230219, end: 20230315
  2. METHYLPHENIDATE HYDROCHLORIDE [Suspect]
     Active Substance: METHYLPHENIDATE HYDROCHLORIDE
     Indication: Attention deficit hyperactivity disorder
  3. Lamignotrine [Concomitant]
  4. BUPROPION [Concomitant]
     Active Substance: BUPROPION
  5. METHYLPHENIDATE [Concomitant]
     Active Substance: METHYLPHENIDATE
  6. VITAMIN D [Concomitant]
     Active Substance: VITAMIN D NOS
  7. magnesium gummies [Concomitant]

REACTIONS (8)
  - Product substitution issue [None]
  - Drug ineffective [None]
  - Impaired work ability [None]
  - Impaired driving ability [None]
  - Feeling abnormal [None]
  - Product dispensing error [None]
  - Product prescribing issue [None]
  - Legal problem [None]

NARRATIVE: CASE EVENT DATE: 20230316
